FAERS Safety Report 24554330 (Version 3)
Quarter: 2025Q1

REPORT INFORMATION
  Report Type: Spontaneous
  Country: JP (occurrence: JP)
  Receive Date: 20241028
  Receipt Date: 20250306
  Transmission Date: 20250409
  Serious: Yes (Other)
  Sender: ROCHE
  Company Number: JP-CHUGAI-2024036882

PATIENT
  Age: 53 Year
  Sex: Female
  Weight: 34 kg

DRUGS (7)
  1. ENSPRYNG [Suspect]
     Active Substance: SATRALIZUMAB-MWGE
     Indication: Neuromyelitis optica spectrum disorder
     Route: 058
     Dates: start: 20230118
  2. ENSPRYNG [Suspect]
     Active Substance: SATRALIZUMAB-MWGE
     Route: 058
     Dates: start: 20240722
  3. LIORESAL [Concomitant]
     Active Substance: BACLOFEN
     Route: 048
  4. RISEDRONATE SODIUM [Concomitant]
     Active Substance: RISEDRONATE SODIUM
     Route: 048
     Dates: start: 20190510
  5. FLUVASTATIN SODIUM [Concomitant]
     Active Substance: FLUVASTATIN SODIUM
     Route: 048
     Dates: start: 20190712
  6. RIVOTRIL [Concomitant]
     Active Substance: CLONAZEPAM
  7. CELECOXIB [Concomitant]
     Active Substance: CELECOXIB

REACTIONS (1)
  - Neuromyelitis optica spectrum disorder [Recovered/Resolved]

NARRATIVE: CASE EVENT DATE: 20241013
